FAERS Safety Report 11178945 (Version 1)
Quarter: 2015Q2

REPORT INFORMATION
  Report Type: Report from Study
  Country: US (occurrence: None)
  Receive Date: 20150609
  Receipt Date: 20150609
  Transmission Date: 20150821
  Serious: Yes (Hospitalization)
  Sender: FDA-Public Use
  Company Number: 2015US001178

PATIENT
  Age: 46 Year
  Sex: Male
  Weight: 84.5 kg

DRUGS (13)
  1. SPIRIVA [Concomitant]
     Active Substance: TIOTROPIUM BROMIDE MONOHYDRATE
  2. OXYGEN (OXYGEN) [Concomitant]
     Active Substance: OXYGEN
  3. VITAMIN D3 [Concomitant]
     Active Substance: CHOLECALCIFEROL
  4. DRISDOL (ERGOCALCIFEROL) [Concomitant]
  5. PRILOSEC (OMEPRAZOLE) [Concomitant]
     Active Substance: OMEPRAZOLE MAGNESIUM
  6. GLASSIA [Suspect]
     Active Substance: .ALPHA.1-PROTEINASE INHIBITOR HUMAN
     Indication: ALPHA-1 ANTI-TRYPSIN DEFICIENCY
     Dosage: 4000 MG 10%, WEEKLY, INTRAVENOUS
     Route: 042
  7. CALTRATE (CALCIUM CARBONATE, COLECALCIFEROL) [Concomitant]
  8. FOSAMAX [Concomitant]
     Active Substance: ALENDRONATE SODIUM
  9. LYRICA [Concomitant]
     Active Substance: PREGABALIN
  10. ALBUTEROL  (SALBUTAMOL) [Concomitant]
     Active Substance: ALBUTEROL
  11. BACLOFEN. [Concomitant]
     Active Substance: BACLOFEN
  12. SYMBIVORT(BUDESONIDE, FORMOTEROL FUMARATE) [Concomitant]
  13. CYMBALTA [Concomitant]
     Active Substance: DULOXETINE HYDROCHLORIDE

REACTIONS (5)
  - Respiratory failure [None]
  - Mental status changes [None]
  - Loss of consciousness [None]
  - Hospitalisation [None]
  - Spinal compression fracture [None]

NARRATIVE: CASE EVENT DATE: 201501
